FAERS Safety Report 15245683 (Version 1)
Quarter: 2018Q3

REPORT INFORMATION
  Report Type: Spontaneous
  Country: US (occurrence: US)
  Receive Date: 20180806
  Receipt Date: 20180806
  Transmission Date: 20181010
  Serious: No
  Sender: FDA-Public Use
  Company Number: US-ABBVIE-17P-163-2056610-00

PATIENT
  Age: 69 Year
  Sex: Female

DRUGS (11)
  1. HYDROCHLOROTHIAZIDE. [Concomitant]
     Active Substance: HYDROCHLOROTHIAZIDE
     Indication: HYPERTENSION
  2. MULTIVITAMIN [Concomitant]
     Active Substance: VITAMINS
     Indication: VITAMIN SUPPLEMENTATION
  3. NIASPAN [Suspect]
     Active Substance: NIACIN
     Route: 048
     Dates: start: 20170722, end: 20170729
  4. ASPIRIN  (NON?ABBVIE) [Concomitant]
     Indication: PRODUCT USED FOR UNKNOWN INDICATION
  5. AVAPRO [Concomitant]
     Active Substance: IRBESARTAN
     Indication: HYPERTENSION
  6. MOBIC (NON?ABBVIE) [Concomitant]
     Indication: ARTHRALGIA
  7. NIASPAN [Suspect]
     Active Substance: NIACIN
     Route: 048
     Dates: start: 20170721, end: 20170721
  8. PROTONIX (NON?ABBVIE) [Concomitant]
     Indication: GASTROOESOPHAGEAL REFLUX DISEASE
  9. NIASPAN [Suspect]
     Active Substance: NIACIN
     Indication: BLOOD CHOLESTEROL INCREASED
     Route: 048
     Dates: start: 20170714, end: 20170721
  10. SINGULAR  (NON?ABBVIE) [Concomitant]
     Indication: HYPERSENSITIVITY
  11. TYLENOL PM EXTRA STRENGTH [Concomitant]
     Active Substance: ACETAMINOPHEN\DIPHENHYDRAMINE HYDROCHLORIDE
     Indication: PAIN

REACTIONS (3)
  - Abdominal pain upper [Recovering/Resolving]
  - Dyspepsia [Recovering/Resolving]
  - Nausea [Recovered/Resolved]

NARRATIVE: CASE EVENT DATE: 20170721
